FAERS Safety Report 6814679-8 (Version None)
Quarter: 2010Q3

REPORT INFORMATION
  Report Type: 
  Country: None (occurrence: None)
  Receive Date: 20100702
  Receipt Date: 20100628
  Transmission Date: 20110219
  Serious: Yes (Other)
  Sender: FDA-Public Use
  Company Number: US-PFIZER INC-2010081175

PATIENT
  Sex: Male
  Weight: 77.1 kg

DRUGS (3)
  1. LIPITOR [Suspect]
     Indication: BLOOD CHOLESTEROL INCREASED
     Dosage: 20 MG, DAILY
     Route: 048
     Dates: start: 20100515, end: 20100623
  2. ADVAIR DISKUS 100/50 [Concomitant]
     Dosage: UNK
  3. AMLODIPINE BESILATE / OLMESARTAN MEDOXOMIL [Concomitant]
     Dosage: UNK

REACTIONS (3)
  - BLOOD CREATINE PHOSPHOKINASE INCREASED [None]
  - CHEST DISCOMFORT [None]
  - DYSPNOEA [None]
